FAERS Safety Report 21909966 (Version 3)
Quarter: 2023Q1

REPORT INFORMATION
  Report Type: Spontaneous
  Country: GB (occurrence: GB)
  Receive Date: 20230125
  Receipt Date: 20230328
  Transmission Date: 20230418
  Serious: Yes (Death, Congenital Anomaly)
  Sender: FDA-Public Use
  Company Number: GB-002147023-NVSC2023GB011640

PATIENT

DRUGS (4)
  1. KESIMPTA [Suspect]
     Active Substance: OFATUMUMAB
     Indication: Foetal exposure during pregnancy
     Dosage: MATERNAL EXPOSURE DURING PREGNANCY: 20 MG, QW
     Route: 064
     Dates: start: 20220302
  2. KESIMPTA [Suspect]
     Active Substance: OFATUMUMAB
     Dosage: MATERNAL EXPOSURE DURING PREGNANCY: 20 MG, QW
     Route: 064
     Dates: start: 20220309
  3. KESIMPTA [Suspect]
     Active Substance: OFATUMUMAB
     Dosage: MATERNAL EXPOSURE DURING PREGNANCY: 20 MG, QW
     Route: 064
     Dates: start: 20220316
  4. KESIMPTA [Suspect]
     Active Substance: OFATUMUMAB
     Dosage: MATERNAL EXPOSURE DURING PREGNANCY: 20 MG (LAST INJECTION)
     Route: 064
     Dates: start: 20220330

REACTIONS (2)
  - Trisomy 18 [Fatal]
  - Foetal exposure during pregnancy [Unknown]
